FAERS Safety Report 23701175 (Version 1)
Quarter: 2024Q2

REPORT INFORMATION
  Report Type: Spontaneous
  Country: US (occurrence: US)
  Receive Date: 20240403
  Receipt Date: 20240403
  Transmission Date: 20240716
  Serious: Yes (Other)
  Sender: FDA-Public Use
  Company Number: US-BAXTER-2024BAX015787

PATIENT

DRUGS (10)
  1. CYCLOPHOSPHAMIDE [Suspect]
     Active Substance: CYCLOPHOSPHAMIDE
     Indication: Breast cancer metastatic
     Dosage: UNK, 4 ROUNDS, START DATE: JUL2017
     Route: 065
  2. CYCLOPHOSPHAMIDE [Suspect]
     Active Substance: CYCLOPHOSPHAMIDE
     Indication: Hormone receptor positive HER2 negative breast cancer
  3. IBRANCE [Suspect]
     Active Substance: PALBOCICLIB
     Indication: Hormone receptor positive HER2 negative breast cancer
     Dosage: 125 MG, START DATE: FEB-2021,  IN COMBINATION WITH LETROZOLE (STIL ON THE SME DOSE)
     Route: 065
  4. IBRANCE [Suspect]
     Active Substance: PALBOCICLIB
     Indication: Breast cancer metastatic
  5. TAXOTERE [Suspect]
     Active Substance: DOCETAXEL
     Indication: Hormone receptor positive HER2 negative breast cancer
     Dosage: UNK, 4 ROUNDS, START DATE: JUL2017
     Route: 065
  6. TAXOTERE [Suspect]
     Active Substance: DOCETAXEL
     Indication: Breast cancer metastatic
  7. PAXLOVID [Suspect]
     Active Substance: NIRMATRELVIR\RITONAVIR
     Indication: Breast cancer metastatic
     Dosage: UNK
     Route: 065
  8. PAXLOVID [Suspect]
     Active Substance: NIRMATRELVIR\RITONAVIR
     Indication: Hormone receptor positive HER2 negative breast cancer
  9. LETROZOLE [Suspect]
     Active Substance: LETROZOLE
     Indication: Hormone receptor positive HER2 negative breast cancer
     Dosage: 2.5 MG, START DATE-FEB-2021
     Route: 065
  10. LETROZOLE [Suspect]
     Active Substance: LETROZOLE
     Indication: Breast cancer metastatic

REACTIONS (11)
  - Lymphoma [Unknown]
  - Neoplasm progression [Unknown]
  - White blood cell count decreased [Unknown]
  - COVID-19 [Unknown]
  - Dyspepsia [Unknown]
  - Hair growth abnormal [Unknown]
  - Osteopenia [Unknown]
  - Lymphoedema [Unknown]
  - Arthralgia [Unknown]
  - Vision blurred [Unknown]
  - Rhinorrhoea [Unknown]
